FAERS Safety Report 25065411 (Version 2)
Quarter: 2025Q2

REPORT INFORMATION
  Report Type: Spontaneous
  Country: US (occurrence: US)
  Receive Date: 20250311
  Receipt Date: 20250416
  Transmission Date: 20250716
  Serious: No
  Sender: MERCK SHARP AND DOHME
  Company Number: US-009507513-2261953

PATIENT
  Age: 4 Year
  Sex: Female

DRUGS (2)
  1. PROQUAD [Suspect]
     Active Substance: MEASLES VIRUS STRAIN ENDERS^ ATTENUATED EDMONSTON LIVE ANTIGEN\MUMPS VIRUS STRAIN B LEVEL JERYL LYNN
     Indication: Prophylaxis
     Dates: start: 20250306
  2. PROQUAD [Suspect]
     Active Substance: MEASLES VIRUS STRAIN ENDERS^ ATTENUATED EDMONSTON LIVE ANTIGEN\MUMPS VIRUS STRAIN B LEVEL JERYL LYNN

REACTIONS (5)
  - Accidental underdose [Unknown]
  - Syringe issue [Unknown]
  - No adverse event [Unknown]
  - Poor quality device used [Unknown]
  - Underdose [Unknown]

NARRATIVE: CASE EVENT DATE: 20250306
